FAERS Safety Report 24655040 (Version 1)
Quarter: 2024Q4

REPORT INFORMATION
  Report Type: Spontaneous
  Country: DK (occurrence: DK)
  Receive Date: 20241122
  Receipt Date: 20241122
  Transmission Date: 20250114
  Serious: Yes (Other)
  Sender: TEVA
  Company Number: DK-TEVA-VS-3264781

PATIENT
  Age: 78 Year
  Sex: Female

DRUGS (1)
  1. LAMOTRIGINE [Suspect]
     Active Substance: LAMOTRIGINE
     Indication: Epilepsy
     Dosage: 200 MG, 56 (BLISTER) TABLETS (ITEM NUMBER: 136695), (MORNING/EVENING)
     Route: 065

REACTIONS (8)
  - Foreign body in throat [Unknown]
  - Vomiting [Recovering/Resolving]
  - Dysphagia [Not Recovered/Not Resolved]
  - Dizziness [Recovering/Resolving]
  - Gait disturbance [Unknown]
  - Product physical issue [Unknown]
  - Wrong technique in product usage process [Unknown]
  - Product prescribing error [Unknown]
